FAERS Safety Report 5753150-1 (Version None)
Quarter: 2008Q2

REPORT INFORMATION
  Report Type: 
  Country: None (occurrence: None)
  Receive Date: 20080530
  Receipt Date: 20080521
  Transmission Date: 20081010
  Serious: Yes (Other)
  Sender: FDA-Public Use
  Company Number: US-JNJFOC-20080504738

PATIENT
  Sex: Female

DRUGS (4)
  1. FENTANYL TRANSDERMAL SYSTEM [Suspect]
     Indication: TRIGEMINAL NEURALGIA
     Route: 062
  2. FENTANYL TRANSDERMAL SYSTEM [Suspect]
     Indication: TRIGEMINAL NEURALGIA
     Route: 062
  3. KLONOPIN [Concomitant]
     Indication: ANXIETY
     Route: 048
  4. KLONOPIN [Concomitant]
     Indication: CONVULSION
     Route: 048

REACTIONS (10)
  - ABASIA [None]
  - DRUG INEFFECTIVE [None]
  - FACIAL PAIN [None]
  - HAEMORRHAGE [None]
  - INCORRECT DRUG ADMINISTRATION DURATION [None]
  - INSOMNIA [None]
  - SINUSITIS [None]
  - TREATMENT NONCOMPLIANCE [None]
  - WITHDRAWAL SYNDROME [None]
  - WRONG TECHNIQUE IN DRUG USAGE PROCESS [None]
